FAERS Safety Report 4476829-0 (Version None)
Quarter: 2004Q4

REPORT INFORMATION
  Report Type: 
  Country: None (occurrence: None)
  Receive Date: 20041013
  Receipt Date: 20040930
  Transmission Date: 20050328
  Serious: Yes (Hospitalization, Other)
  Sender: FDA-Public Use
  Company Number: USA-2004-0015004

PATIENT
  Age: 38 Year
  Sex: Female

DRUGS (15)
  1. OXYCONTIN [Suspect]
     Indication: PAIN
     Dosage: 1000 + 120 MG, DAILY, ORAL
     Route: 048
     Dates: start: 19970415, end: 20000312
  2. OXYCODONE HCL [Concomitant]
  3. MERIDIA [Concomitant]
  4. NICOTROL (NICOTINE) [Concomitant]
  5. EFFEXOR [Concomitant]
  6. AMBIEN [Concomitant]
  7. PROZAC [Concomitant]
  8. SINEQUAN [Concomitant]
  9. ZYBAN [Concomitant]
  10. ZOLOFT [Concomitant]
  11. DALMANE [Concomitant]
  12. DEXTROMETHORPHAN (DEXTROMETHORPHAN) [Concomitant]
  13. TYLENOL PM (DIPHENHYDRAMINE) [Concomitant]
  14. NYQUIL (EPHEDRINE SULFATE, DOXYLAMINE SUCCINATE, DEROMETHORPHAN HYDROB [Concomitant]
  15. DARVOCET [Concomitant]

REACTIONS (39)
  - ACQUIRED DIAPHRAGMATIC EVENTRATION [None]
  - ACTIVITIES OF DAILY LIVING IMPAIRED [None]
  - ALCOHOL USE [None]
  - ARTHRALGIA [None]
  - ATRIOVENTRICULAR BLOCK FIRST DEGREE [None]
  - BLOOD POTASSIUM DECREASED [None]
  - BLOOD UREA DECREASED [None]
  - CHEST X-RAY ABNORMAL [None]
  - CRYING [None]
  - DEHYDRATION [None]
  - DIAPHRAGMATIC DISORDER [None]
  - DIARRHOEA [None]
  - DRUG ABUSER [None]
  - DRUG DEPENDENCE [None]
  - DRUG WITHDRAWAL SYNDROME [None]
  - ELECTROCARDIOGRAM QRS COMPLEX ABNORMAL [None]
  - FALL [None]
  - GAIT DISTURBANCE [None]
  - HYPOAESTHESIA [None]
  - INADEQUATE ANALGESIA [None]
  - INFLUENZA [None]
  - INTENTIONAL OVERDOSE [None]
  - MAJOR DEPRESSION [None]
  - MARITAL PROBLEM [None]
  - MIGRAINE [None]
  - MONONUCLEOSIS SYNDROME [None]
  - MUSCLE SPASMS [None]
  - MUSCULOSKELETAL STIFFNESS [None]
  - PAIN [None]
  - PERICARDIAL DISEASE [None]
  - PHARYNGITIS [None]
  - RESTLESSNESS [None]
  - SINUS TACHYCARDIA [None]
  - SKELETAL INJURY [None]
  - SUICIDE ATTEMPT [None]
  - THERAPEUTIC AGENT TOXICITY [None]
  - TREATMENT NONCOMPLIANCE [None]
  - WEIGHT DECREASED [None]
  - WEIGHT INCREASED [None]
